FAERS Safety Report 10331819 (Version 1)
Quarter: 2014Q3

REPORT INFORMATION
  Report Type: Spontaneous
  Country: FR (occurrence: FR)
  Receive Date: 20140722
  Receipt Date: 20140722
  Transmission Date: 20150326
  Serious: Yes (Hospitalization)
  Sender: FDA-Public Use
  Company Number: FR-FRI-1000068928

PATIENT
  Age: 81 Year
  Sex: Female

DRUGS (12)
  1. MILNACIPRAN [Suspect]
     Active Substance: MILNACIPRAN
     Dosage: 100 MG
     Route: 048
     Dates: start: 20131201, end: 20131209
  2. IXPRIM [Concomitant]
     Active Substance: ACETAMINOPHEN\TRAMADOL HYDROCHLORIDE
  3. EUPRESSYL [Concomitant]
     Active Substance: URAPIDIL
  4. SIMVASTATIN. [Concomitant]
     Active Substance: SIMVASTATIN
     Dosage: 20 MG
  5. METEOSPASMIL [Concomitant]
  6. NOROXINE [Suspect]
     Active Substance: NORFLOXACIN
     Dosage: 800 MG
     Route: 048
     Dates: start: 20131202, end: 20131210
  7. LYRICA [Concomitant]
     Active Substance: PREGABALIN
  8. MILNACIPRAN [Suspect]
     Active Substance: MILNACIPRAN
     Dosage: 50 MG
     Route: 048
     Dates: start: 20131127, end: 20131130
  9. NISISCO [Concomitant]
     Active Substance: HYDROCHLOROTHIAZIDE\VALSARTAN
     Dosage: 160/25 MG
  10. EUCREAS [Concomitant]
     Active Substance: METFORMIN HYDROCHLORIDE\VILDAGLIPTIN
  11. DIAMICRON IM [Concomitant]
     Dosage: 30 MG
  12. INEXIUM [Concomitant]
     Active Substance: ESOMEPRAZOLE
     Dosage: 40 MG

REACTIONS (3)
  - Hyponatraemia [Unknown]
  - Pyelonephritis acute [Unknown]
  - Mixed liver injury [Recovered/Resolved]

NARRATIVE: CASE EVENT DATE: 20131202
